FAERS Safety Report 4471475-7 (Version None)
Quarter: 2004Q4

REPORT INFORMATION
  Report Type: 
  Country: None (occurrence: None)
  Receive Date: 20041007
  Receipt Date: 20041007
  Transmission Date: 20050328
  Serious: Yes (Life-Threatening, Disabling, Other)
  Sender: FDA-Public Use
  Company Number: None

PATIENT
  Age: 44 Year
  Sex: Female
  Weight: 107.0489 kg

DRUGS (3)
  1. DURAGESIC [Suspect]
     Indication: BACK PAIN
     Dosage: DURAGESIC 75 MCG 1 PATCH EVERY 48 HOURS
     Route: 062
     Dates: start: 19990101
  2. DURAGESIC [Suspect]
     Indication: DRUG TOLERANCE
     Dosage: DURAGESIC 75 MCG 1 PATCH EVERY 48 HOURS
     Route: 062
     Dates: start: 19990101
  3. DURAGESIC [Suspect]
     Indication: NEURALGIA
     Dosage: DURAGESIC 75 MCG 1 PATCH EVERY 48 HOURS
     Route: 062
     Dates: start: 19990101

REACTIONS (7)
  - ASTHENIA [None]
  - MALAISE [None]
  - MUSCLE TWITCHING [None]
  - PAIN [None]
  - PHARMACEUTICAL PRODUCT COMPLAINT [None]
  - PYREXIA [None]
  - TREMOR [None]
